FAERS Safety Report 15191662 (Version 1)
Quarter: 2018Q3

REPORT INFORMATION
  Report Type: Spontaneous
  Country: IT (occurrence: IT)
  Receive Date: 20180724
  Receipt Date: 20180724
  Transmission Date: 20181010
  Serious: Yes (Other)
  Sender: FDA-Public Use
  Company Number: IT-MYLANLABS-2018M1053763

PATIENT
  Age: 7 Month
  Sex: Male

DRUGS (2)
  1. PREDNISONE. [Suspect]
     Active Substance: PREDNISONE
     Indication: CHEMOTHERAPY
     Dosage: PREDNISONE, ORALLY, 10 MG/M2 IN THREE DOSES ON DAYS 1 TO 5 EVERY 3 WEEKS
     Route: 048
  2. VINBLASTINE [Suspect]
     Active Substance: VINBLASTINE
     Indication: CHEMOTHERAPY
     Dosage: VINBLASTINE 1.5 MG/M2 INTRAVENOUS BOLUS ON THE FIRST DAY OF WEEKS 1,2,3,4,5, AND 6
     Route: 042

REACTIONS (3)
  - Anaemia [Recovered/Resolved]
  - Mucosal inflammation [Recovered/Resolved]
  - Gastrointestinal toxicity [Recovered/Resolved]
